FAERS Safety Report 8982952 (Version 1)
Quarter: 2012Q4

REPORT INFORMATION
  Report Type: 
  Country: FR (occurrence: FR)
  Receive Date: 20121224
  Receipt Date: 20121224
  Transmission Date: 20130627
  Serious: Yes (Hospitalization, Other)
  Sender: FDA-Public Use
  Company Number: PHHY2012FR119077

PATIENT
  Age: 50 Year
  Sex: Male

DRUGS (8)
  1. NEORAL [Suspect]
  2. VFEND [Suspect]
     Indication: BRONCHOPULMONARY ASPERGILLOSIS
     Route: 048
     Dates: start: 199812
  3. VFEND [Suspect]
     Dates: start: 200703, end: 200804
  4. VFEND [Suspect]
     Dates: start: 200805, end: 200905
  5. VFEND [Suspect]
     Dates: start: 200907, end: 201005
  6. VFEND [Suspect]
     Dates: start: 20100730, end: 201103
  7. CELLCEPT [Suspect]
     Route: 048
     Dates: start: 199812
  8. CORTICOSTEROIDS [Suspect]

REACTIONS (6)
  - Photosensitivity reaction [Recovered/Resolved]
  - Erythema [Recovered/Resolved]
  - Squamous cell carcinoma [Recovered/Resolved with Sequelae]
  - Actinic keratosis [Unknown]
  - Graft versus host disease [Unknown]
  - Cheilitis [Unknown]
